FAERS Safety Report 16330236 (Version 1)
Quarter: 2019Q2

REPORT INFORMATION
  Report Type: Spontaneous
  Country: DE (occurrence: DE)
  Receive Date: 20190520
  Receipt Date: 20190520
  Transmission Date: 20190711
  Serious: Yes (Other)
  Sender: FDA-Public Use
  Company Number: DE-ACCORD-128413

PATIENT
  Age: 82 Year
  Sex: Female
  Weight: 82 kg

DRUGS (13)
  1. STANGYL 25 [Concomitant]
     Dosage: 0-0-2
  2. IBRANCE [Suspect]
     Active Substance: PALBOCICLIB
     Indication: BREAST CANCER FEMALE
     Route: 048
     Dates: start: 20190227, end: 20190315
  3. VIGANTOLETTEN 1000  I.E. [Concomitant]
     Dosage: 1-0-0
  4. ASPIRIN PROTECT [Concomitant]
     Active Substance: ASPIRIN
     Dosage: 1-0-0
     Route: 048
     Dates: end: 20190318
  5. ACC 200 [Concomitant]
     Active Substance: ACETYLCYSTEINE
     Dosage: 3-0-0
  6. FUROSEMIDE. [Concomitant]
     Active Substance: FUROSEMIDE
     Dosage: 1-0-0
     Route: 048
  7. DELIX 5 [Concomitant]
     Active Substance: RAMIPRIL
     Dosage: 1-0-0
     Route: 048
  8. ROSUVASTATIN. [Suspect]
     Active Substance: ROSUVASTATIN
     Indication: CORONARY ARTERY DISEASE
     Route: 048
     Dates: start: 20190221, end: 20190315
  9. ORTHOMOL [Concomitant]
     Dosage: 3 GABEN
  10. HCT [Concomitant]
     Active Substance: HYDROCHLOROTHIAZIDE
     Dosage: 1-0-0
     Route: 048
  11. BELOC-ZOK MITE [Concomitant]
     Active Substance: METOPROLOL SUCCINATE
     Dosage: 1-0-0
     Route: 048
  12. MIRTAZAPINE. [Concomitant]
     Active Substance: MIRTAZAPINE
     Dosage: 0-0-1
     Route: 048
  13. OXAZEPAM. [Concomitant]
     Active Substance: OXAZEPAM
     Dosage: 0-0-1

REACTIONS (5)
  - Neutropenia [Recovered/Resolved]
  - Thrombocytopenia [Recovered/Resolved]
  - Leukopenia [Recovered/Resolved]
  - Pancytopenia [Recovered/Resolved]
  - Acute kidney injury [Recovered/Resolved]

NARRATIVE: CASE EVENT DATE: 20190315
